FAERS Safety Report 24050904 (Version 1)
Quarter: 2024Q3

REPORT INFORMATION
  Report Type: Spontaneous
  Country: US (occurrence: US)
  Receive Date: 20240704
  Receipt Date: 20240704
  Transmission Date: 20241017
  Serious: No
  Sender: MERCK
  Company Number: US-009507513-2406USA001199

PATIENT
  Age: 60 Year
  Sex: Female

DRUGS (15)
  1. KEYTRUDA [Suspect]
     Active Substance: PEMBROLIZUMAB
     Indication: Breast cancer
     Dosage: UNK
     Dates: start: 20220609, end: 20221111
  2. KEYTRUDA [Suspect]
     Active Substance: PEMBROLIZUMAB
     Indication: Anaplastic large cell lymphoma T- and null-cell types
     Dosage: UNK
     Dates: start: 2023
  3. KEYTRUDA [Suspect]
     Active Substance: PEMBROLIZUMAB
     Indication: Angiosarcoma metastatic
  4. CARBOPLATIN [Concomitant]
     Active Substance: CARBOPLATIN
     Indication: Breast cancer
     Dosage: UNK
     Dates: start: 20220609
  5. CARBOPLATIN [Concomitant]
     Active Substance: CARBOPLATIN
     Indication: Anaplastic large cell lymphoma T- and null-cell types
  6. CARBOPLATIN [Concomitant]
     Active Substance: CARBOPLATIN
     Indication: Angiosarcoma metastatic
  7. PACLITAXEL [Concomitant]
     Active Substance: PACLITAXEL
     Indication: Breast cancer
     Dosage: UNK
     Dates: start: 20220609
  8. PACLITAXEL [Concomitant]
     Active Substance: PACLITAXEL
     Indication: Anaplastic large cell lymphoma T- and null-cell types
  9. PACLITAXEL [Concomitant]
     Active Substance: PACLITAXEL
     Indication: Angiosarcoma metastatic
  10. DOXORUBICIN [Concomitant]
     Active Substance: DOXORUBICIN
     Indication: Breast cancer
     Dosage: UNK
     Dates: start: 2022, end: 20221111
  11. DOXORUBICIN [Concomitant]
     Active Substance: DOXORUBICIN
     Indication: Anaplastic large cell lymphoma T- and null-cell types
  12. DOXORUBICIN [Concomitant]
     Active Substance: DOXORUBICIN
     Indication: Angiosarcoma metastatic
  13. CYCLOPHOSPHAMIDE [Concomitant]
     Active Substance: CYCLOPHOSPHAMIDE
     Indication: Breast cancer
     Dosage: UNK
     Dates: start: 2022, end: 20221111
  14. CYCLOPHOSPHAMIDE [Concomitant]
     Active Substance: CYCLOPHOSPHAMIDE
     Indication: Anaplastic large cell lymphoma T- and null-cell types
  15. CYCLOPHOSPHAMIDE [Concomitant]
     Active Substance: CYCLOPHOSPHAMIDE
     Indication: Angiosarcoma metastatic

REACTIONS (1)
  - Drug ineffective [Unknown]

NARRATIVE: CASE EVENT DATE: 20230303
